FAERS Safety Report 7059683-2 (Version None)
Quarter: 2010Q4

REPORT INFORMATION
  Report Type: 
  Country: None (occurrence: None)
  Receive Date: 20101025
  Receipt Date: 20101013
  Transmission Date: 20110411
  Serious: Yes (Death, Hospitalization)
  Sender: FDA-Public Use
  Company Number: US-ACTELION-A-NJ2008-19325

PATIENT
  Sex: Female

DRUGS (4)
  1. BOSENTAN TABLET UNKNOWN US MG [Suspect]
     Indication: PULMONARY ARTERIAL HYPERTENSION
     Dosage: UNK
     Route: 048
     Dates: start: 20070322
  2. REMODULIN [Concomitant]
  3. REVATIO [Concomitant]
  4. CALCIUM CHANNEL BLOCKERS [Concomitant]

REACTIONS (10)
  - CARDIAC OPERATION [None]
  - DEATH [None]
  - DYSPNOEA [None]
  - ENDOCARDITIS [None]
  - FLUID OVERLOAD [None]
  - FLUID RETENTION [None]
  - HEART VALVE INCOMPETENCE [None]
  - NASAL CONGESTION [None]
  - OEDEMA PERIPHERAL [None]
  - PLEURAL EFFUSION [None]
